FAERS Safety Report 6148571-1 (Version None)
Quarter: 2009Q2

REPORT INFORMATION
  Report Type: 
  Country: None (occurrence: None)
  Receive Date: 20090408
  Receipt Date: 20090403
  Transmission Date: 20091009
  Serious: Yes (Hospitalization)
  Sender: FDA-Public Use
  Company Number: PHHO2009AU04136

PATIENT
  Sex: Male
  Weight: 100 kg

DRUGS (6)
  1. CYCLOSPORINE [Suspect]
     Dosage: 200 MG, BID
     Dates: start: 20090112
  2. CYCLOSPORINE [Suspect]
     Dosage: 125 MG, BID
  3. ZOLEDRONIC ACID [Suspect]
     Indication: STEM CELL TRANSPLANT
     Dosage: 4 MG, UNK
     Route: 042
     Dates: start: 20090105
  4. VITAMIN D [Concomitant]
  5. CALCIUM [Concomitant]
  6. PANTOPRAZOLE SODIUM [Concomitant]
     Indication: GASTRITIS PROPHYLAXIS

REACTIONS (7)
  - ABDOMINAL PAIN UPPER [None]
  - BLOOD CREATININE INCREASED [None]
  - DRUG TOXICITY [None]
  - HYPOPHAGIA [None]
  - NAUSEA [None]
  - RENAL FAILURE ACUTE [None]
  - VOMITING [None]
